FAERS Safety Report 6899364-9 (Version None)
Quarter: 2010Q3

REPORT INFORMATION
  Report Type: 
  Country: None (occurrence: None)
  Receive Date: 20100803
  Receipt Date: 20090524
  Transmission Date: 20110219
  Serious: No
  Sender: FDA-Public Use
  Company Number: US-PFIZER INC-2007065791

PATIENT
  Sex: Female
  Weight: 63.502 kg

DRUGS (6)
  1. LYRICA [Suspect]
     Indication: FIBROMYALGIA
     Dosage: 25 MG, 1X/DAY
     Dates: start: 20070731
  2. LYRICA [Suspect]
     Indication: MERALGIA PARAESTHETICA
     Dosage: 150 MG, 2X/DAY
     Dates: start: 20080101
  3. LYRICA [Suspect]
     Indication: PAIN
  4. KLONOPIN [Concomitant]
  5. ACIPHEX [Concomitant]
  6. PROMETHAZINE [Concomitant]

REACTIONS (10)
  - ANAEMIA [None]
  - ASTHENIA [None]
  - BURNING SENSATION [None]
  - FATIGUE [None]
  - HEADACHE [None]
  - INSOMNIA [None]
  - OEDEMA PERIPHERAL [None]
  - PAIN [None]
  - PARAESTHESIA [None]
  - WEIGHT INCREASED [None]
